FAERS Safety Report 11136119 (Version 1)
Quarter: 2015Q2

REPORT INFORMATION
  Report Type: Report from Study
  Country: BR (occurrence: BR)
  Receive Date: 20150525
  Receipt Date: 20150525
  Transmission Date: 20150821
  Serious: Yes (Death, Other)
  Sender: FDA-Public Use
  Company Number: PHHY2015BR059726

PATIENT
  Sex: Female
  Weight: 56 kg

DRUGS (3)
  1. EXELON PATCH [Suspect]
     Active Substance: RIVASTIGMINE
     Dosage: 1 DF (10 MG PATCH), QD
     Route: 062
     Dates: start: 201410, end: 201505
  2. EXELON PATCH [Suspect]
     Active Substance: RIVASTIGMINE
     Dosage: 1 DF, QD
     Route: 062
     Dates: start: 201505
  3. EXELON PATCH [Suspect]
     Active Substance: RIVASTIGMINE
     Indication: DEMENTIA ALZHEIMER^S TYPE
     Dosage: 1 DF (5 UNITS), QD
     Route: 062
     Dates: start: 201403, end: 201410

REACTIONS (4)
  - Gait disturbance [Not Recovered/Not Resolved]
  - Pancreatic carcinoma [Fatal]
  - Pain in extremity [Not Recovered/Not Resolved]
  - Decreased appetite [Fatal]
